FAERS Safety Report 11519051 (Version 1)
Quarter: 2015Q3

REPORT INFORMATION
  Report Type: Spontaneous
  Country: US (occurrence: US)
  Receive Date: 20150917
  Receipt Date: 20150917
  Transmission Date: 20151125
  Serious: No
  Sender: FDA-Public Use
  Company Number: US-ALLERGAN-1421822US

PATIENT
  Sex: Female

DRUGS (2)
  1. VANIQA [Suspect]
     Active Substance: EFLORNITHINE HYDROCHLORIDE
     Indication: HAIR GROWTH ABNORMAL
     Dosage: UNK, BID
     Route: 061
     Dates: start: 201408
  2. VITAMINS [Concomitant]
     Active Substance: VITAMINS
     Indication: SUPPLEMENTATION THERAPY

REACTIONS (4)
  - Drug ineffective [Unknown]
  - Skin irritation [Unknown]
  - Pain of skin [Unknown]
  - Erythema [Unknown]
